FAERS Safety Report 5866147-8 (Version None)
Quarter: 2008Q3

REPORT INFORMATION
  Report Type: 
  Country: None (occurrence: None)
  Receive Date: 20080829
  Receipt Date: 20080822
  Transmission Date: 20090109
  Serious: Yes (Hospitalization, Other)
  Sender: FDA-Public Use
  Company Number: US-MERCK-0805USA00729

PATIENT
  Sex: Female

DRUGS (1)
  1. FOSAMAX [Suspect]
     Indication: OSTEOPENIA
     Route: 048
     Dates: start: 20020513, end: 20070801

REACTIONS (9)
  - ACTIVITIES OF DAILY LIVING IMPAIRED [None]
  - ARTHROPATHY [None]
  - BLOOD PRESSURE INCREASED [None]
  - CYSTOCELE [None]
  - GAIT DISTURBANCE [None]
  - LIMB INJURY [None]
  - MUSCULOSKELETAL DISORDER [None]
  - OSTEONECROSIS [None]
  - PAIN [None]
